FAERS Safety Report 4564800-X (Version None)
Quarter: 2005Q1

REPORT INFORMATION
  Report Type: 
  Country: None (occurrence: None)
  Receive Date: 20050128
  Receipt Date: 20021202
  Transmission Date: 20050727
  Serious: Yes (Hospitalization, Disabling)
  Sender: FDA-Public Use
  Company Number: US-MERCK-0212USA00230

PATIENT
  Age: 35 Year
  Sex: Male
  Weight: 91 kg

DRUGS (6)
  1. VIOXX [Suspect]
     Indication: PAIN IN EXTREMITY
     Route: 048
     Dates: start: 20010419, end: 20011126
  2. HUMULIN [Concomitant]
     Route: 065
  3. HUMULIN [Concomitant]
     Route: 065
     Dates: start: 20010420
  4. CLOTRIMAZOLE [Concomitant]
     Route: 065
  5. NEUROTONIN CAPSULES [Concomitant]
     Indication: NEURALGIA
     Route: 065
  6. VICOPROFEN [Concomitant]
     Route: 065
     Dates: start: 20010416

REACTIONS (18)
  - ANGINA PECTORIS [None]
  - ARTHRALGIA [None]
  - CHEST DISCOMFORT [None]
  - CORONARY ARTERY DISEASE [None]
  - DRUG INEFFECTIVE [None]
  - DYSPEPSIA [None]
  - DYSPHAGIA [None]
  - GASTRIC ULCER [None]
  - HEADACHE [None]
  - MYOCARDIAL INFARCTION [None]
  - NEURALGIA [None]
  - OESOPHAGITIS [None]
  - PAIN [None]
  - PAIN IN EXTREMITY [None]
  - SPINAL OSTEOARTHRITIS [None]
  - STOMACH DISCOMFORT [None]
  - VOMITING [None]
  - WEIGHT INCREASED [None]
